FAERS Safety Report 11162649 (Version 1)
Quarter: 2015Q2

REPORT INFORMATION
  Report Type: Spontaneous
  Country: US (occurrence: US)
  Receive Date: 20150604
  Receipt Date: 20150604
  Transmission Date: 20150821
  Serious: No
  Sender: FDA-Public Use
  Company Number: US-SA-2015SA000236

PATIENT
  Age: 66 Year
  Sex: Female

DRUGS (3)
  1. HUMALOG [Concomitant]
     Active Substance: INSULIN LISPRO
  2. LANTUS SOLOSTAR [Suspect]
     Active Substance: INSULIN GLARGINE
     Dosage: DOSE:45 UNIT(S)
     Route: 065
     Dates: start: 201402
  3. SOLOSTAR [Suspect]
     Active Substance: DEVICE
     Dates: start: 201402

REACTIONS (3)
  - Injection site pain [Unknown]
  - Visual impairment [Unknown]
  - Condition aggravated [Unknown]
